FAERS Safety Report 6159135-8 (Version None)
Quarter: 2009Q2

REPORT INFORMATION
  Report Type: 
  Country: None (occurrence: None)
  Receive Date: 20090415
  Receipt Date: 20090401
  Transmission Date: 20091009
  Serious: Yes (Other)
  Sender: FDA-Public Use
  Company Number: US-1169212

PATIENT
  Age: 64 Year
  Sex: Male

DRUGS (4)
  1. CIPROFLOXACIN [Suspect]
     Indication: ANTIBIOTIC PROPHYLAXIS
     Dosage: (OPHTHALMIC)
     Route: 047
     Dates: start: 20081230, end: 20081230
  2. PRED FORTE [Concomitant]
  3. XIBROM [Concomitant]
  4. ZYMAR [Concomitant]

REACTIONS (1)
  - ANTERIOR CHAMBER DISORDER [None]
